FAERS Safety Report 8329623-4 (Version None)
Quarter: 2012Q2

REPORT INFORMATION
  Report Type: 
  Country: None (occurrence: None)
  Receive Date: 20120502
  Receipt Date: 20090924
  Transmission Date: 20120825
  Serious: No
  Sender: FDA-Public Use
  Company Number: US-TEVA-2009010778

PATIENT
  Sex: Male
  Weight: 97.156 kg

DRUGS (4)
  1. NUVIGIL [Suspect]
     Indication: MULTIPLE SCLEROSIS
     Dosage: 150 MILLIGRAM;
     Route: 048
  2. COPAXONE [Concomitant]
  3. ADDERALL 5 [Concomitant]
  4. ROXICODONE [Concomitant]

REACTIONS (1)
  - SOMNOLENCE [None]
